FAERS Safety Report 4915129-9 (Version None)
Quarter: 2006Q1

REPORT INFORMATION
  Report Type: 
  Country: None (occurrence: None)
  Receive Date: 20060217
  Receipt Date: 20060207
  Transmission Date: 20060701
  Serious: Yes (Death, Other)
  Sender: FDA-Public Use
  Company Number: ES-ABBOTT-06P-144-0324782-00

PATIENT
  Age: 35 Year
  Sex: Male

DRUGS (2)
  1. CYCLOSPORINE [Suspect]
     Indication: PROPHYLAXIS AGAINST TRANSPLANT REJECTION
  2. CYCLOSPORINE [Suspect]

REACTIONS (2)
  - ENCEPHALOPATHY [None]
  - THROMBOTIC THROMBOCYTOPENIC PURPURA [None]
